FAERS Safety Report 13546129 (Version 16)
Quarter: 2017Q4

REPORT INFORMATION
  Report Type: Report from Study
  Country: FR (occurrence: FR)
  Receive Date: 20170515
  Receipt Date: 20171211
  Transmission Date: 20180320
  Serious: Yes (Hospitalization)
  Sender: FDA-Public Use
  Company Number: FR-PFIZER INC-2017206612

PATIENT
  Age: 66 Year
  Sex: Male
  Weight: 86 kg

DRUGS (17)
  1. AXITINIB [Suspect]
     Active Substance: AXITINIB
     Dosage: 2 MG, 2X/DAY (2 MG MORNING AND EVENING) (CYCLE 5)
     Route: 048
     Dates: start: 20170626, end: 20170706
  2. DOLIPRANE [Concomitant]
     Active Substance: ACETAMINOPHEN
     Dosage: 1 G, UNK
     Route: 048
     Dates: start: 20170418, end: 20170504
  3. ACTISKENAN [Concomitant]
     Active Substance: MORPHINE SULFATE
     Dosage: 20 MG, UNK
     Route: 048
     Dates: start: 20170317, end: 20170503
  4. SIMVASTATIN. [Concomitant]
     Active Substance: SIMVASTATIN
     Dosage: 20 MG, UNK
     Route: 048
     Dates: start: 201702, end: 20170703
  5. LYRICA [Concomitant]
     Active Substance: PREGABALIN
     Dosage: 25 MG, UNK
     Route: 048
     Dates: start: 20170418, end: 20170503
  6. TELMISARTAN. [Concomitant]
     Active Substance: TELMISARTAN
     Dosage: 40 MG, UNK
     Route: 048
     Dates: start: 201702, end: 20170622
  7. AXITINIB [Suspect]
     Active Substance: AXITINIB
     Dosage: 5 MG, 2X/DAY (TOTAL DAILY DOSE)
     Route: 048
     Dates: start: 20170419, end: 20170419
  8. AXITINIB [Suspect]
     Active Substance: AXITINIB
     Dosage: 5 MG, 2X/DAY
     Route: 048
     Dates: start: 20170504, end: 20170504
  9. AXITINIB [Suspect]
     Active Substance: AXITINIB
     Indication: METASTATIC RENAL CELL CARCINOMA
     Dosage: 5 MG, 2X/DAY
     Route: 048
     Dates: start: 20170329, end: 20170418
  10. AXITINIB [Suspect]
     Active Substance: AXITINIB
     Dosage: 3 MG, 2X/DAY (3 MG MORNING AND EVENING)
     Route: 048
     Dates: start: 20170515, end: 20170606
  11. MOVICOL [Concomitant]
     Active Substance: POLYETHYLENE GLYCOL 3350\POTASSIUM CHLORIDE\SODIUM BICARBONATE\SODIUM CHLORIDE
     Dosage: 1 DF, UNK
     Dates: start: 20170418
  12. AXITINIB [Suspect]
     Active Substance: AXITINIB
     Dosage: 5 MG, 2X/DAY
     Route: 048
     Dates: start: 20170420, end: 20170503
  13. PEMBROLIZUMAB. [Suspect]
     Active Substance: PEMBROLIZUMAB
     Indication: METASTATIC RENAL CELL CARCINOMA
     Dosage: 200 MG, EVERY 3 WEEKS (INFUSION VOLUME 108 ML)
     Route: 042
     Dates: start: 20170329, end: 20170329
  14. PEMBROLIZUMAB. [Suspect]
     Active Substance: PEMBROLIZUMAB
     Dosage: 200 MG, Q3W (EVERY 3 WEEKS)
     Route: 042
     Dates: start: 20170419, end: 20170419
  15. PEMBROLIZUMAB. [Suspect]
     Active Substance: PEMBROLIZUMAB
     Dosage: 200 MG, Q3W (EVERY 3 WEEKS) CYCLE 4 108 ML
     Route: 042
     Dates: start: 20170607
  16. ABSTRAL [Concomitant]
     Active Substance: FENTANYL CITRATE
     Dosage: 200 UG, UNK
     Route: 048
     Dates: start: 20170418, end: 20170504
  17. SKENAN [Concomitant]
     Active Substance: MORPHINE SULFATE
     Dosage: 10 MG, UNK
     Route: 048
     Dates: start: 20170317, end: 20170503

REACTIONS (1)
  - Hepatocellular injury [Recovered/Resolved]

NARRATIVE: CASE EVENT DATE: 20170504
